FAERS Safety Report 5072591-1 (Version None)
Quarter: 2006Q3

REPORT INFORMATION
  Report Type: 
  Country: None (occurrence: None)
  Receive Date: 20060807
  Receipt Date: 20060726
  Transmission Date: 20061208
  Serious: Yes (Hospitalization)
  Sender: FDA-Public Use
  Company Number: GB-JNJFOC-20050905883

PATIENT
  Sex: Female

DRUGS (4)
  1. RISPERDAL CONSTA [Suspect]
     Dosage: SECOND INJECTION
     Route: 065
  2. RISPERDAL CONSTA [Suspect]
     Dosage: THIRD INJECTION
     Route: 065
  3. RISPERDAL CONSTA [Suspect]
     Indication: SCHIZOAFFECTIVE DISORDER
     Dosage: FIRST INJECTION
     Route: 065
  4. PROZAC [Concomitant]
     Indication: DEPRESSED MOOD

REACTIONS (3)
  - INSOMNIA [None]
  - PSYCHOTIC DISORDER [None]
  - URINARY TRACT INFECTION [None]
